FAERS Safety Report 22531668 (Version 1)
Quarter: 2023Q2

REPORT INFORMATION
  Report Type: Spontaneous
  Country: US (occurrence: None)
  Receive Date: 20230607
  Receipt Date: 20230607
  Transmission Date: 20230721
  Serious: Yes (Other)
  Sender: FDA-Public Use
  Company Number: 2023A125742

PATIENT
  Sex: Female

DRUGS (1)
  1. BREZTRI [Suspect]
     Active Substance: BUDESONIDE\FORMOTEROL\GLYCOPYRROLATE
     Dosage: 160.0UG UNKNOWN
     Route: 055

REACTIONS (11)
  - Rib fracture [Unknown]
  - Dyspnoea [Unknown]
  - Oxygen saturation decreased [Unknown]
  - Respiratory distress [Unknown]
  - Vocal cord dysfunction [Unknown]
  - Lung disorder [Unknown]
  - Muscle rupture [Unknown]
  - Musculoskeletal disorder [Unknown]
  - Feeling abnormal [Unknown]
  - Dysphonia [Unknown]
  - Cough [Unknown]
